FAERS Safety Report 6103153-2 (Version None)
Quarter: 2009Q1

REPORT INFORMATION
  Report Type: 
  Country: None (occurrence: None)
  Receive Date: 20090305
  Receipt Date: 20090223
  Transmission Date: 20090719
  Serious: Yes (Hospitalization)
  Sender: FDA-Public Use
  Company Number: FR-PFIZER INC-2009175305

PATIENT

DRUGS (7)
  1. AMLOR [Suspect]
     Route: 048
  2. SELOKEN [Suspect]
     Route: 048
     Dates: end: 20081119
  3. NEBIVOLOL [Suspect]
     Route: 048
  4. STILNOX [Concomitant]
  5. TROSPIUM CHLORIDE [Concomitant]
  6. VASTEN [Concomitant]
  7. LOVENOX [Concomitant]

REACTIONS (2)
  - FALL [None]
  - FEMUR FRACTURE [None]
